FAERS Safety Report 25242316 (Version 1)
Quarter: 2025Q2

REPORT INFORMATION
  Report Type: Spontaneous
  Country: TR (occurrence: TR)
  Receive Date: 20250427
  Receipt Date: 20250427
  Transmission Date: 20250717
  Serious: Yes (Other)
  Sender: ABBVIE
  Company Number: TR-ABBVIE-6243779

PATIENT
  Age: 37 Year
  Sex: Male

DRUGS (2)
  1. RINVOQ [Suspect]
     Active Substance: UPADACITINIB
     Indication: Axial spondyloarthritis
     Route: 048
     Dates: start: 202404
  2. SULFASALAZINE [Concomitant]
     Active Substance: SULFASALAZINE
     Indication: Axial spondyloarthritis
     Route: 048

REACTIONS (6)
  - Deafness [Recovered/Resolved]
  - Otitis media [Unknown]
  - Viral upper respiratory tract infection [Unknown]
  - Drug ineffective [Unknown]
  - Conjunctivitis viral [Recovered/Resolved]
  - Joint range of motion decreased [Unknown]

NARRATIVE: CASE EVENT DATE: 20240801
